FAERS Safety Report 20649173 (Version 5)
Quarter: 2023Q2

REPORT INFORMATION
  Report Type: Spontaneous
  Country: VI (occurrence: VI)
  Receive Date: 20220329
  Receipt Date: 20230505
  Transmission Date: 20230722
  Serious: Yes (Hospitalization, Other)
  Sender: FDA-Public Use
  Company Number: VI-PFIZER INC-202200439987

PATIENT
  Age: 72 Year
  Sex: Female
  Weight: 59.87 kg

DRUGS (7)
  1. PREMARIN [Suspect]
     Active Substance: ESTROGENS, CONJUGATED
     Indication: Oestrogen replacement therapy
     Dosage: 1.25 MG, CYCLIC (5 DAYS ON AND 2 DAYS OFF)
     Route: 048
  2. PREMARIN [Suspect]
     Active Substance: ESTROGENS, CONJUGATED
     Indication: Hysterectomy
     Dosage: 1.25 DAILY
     Dates: start: 1988
  3. PREMARIN [Suspect]
     Active Substance: ESTROGENS, CONJUGATED
     Indication: Hormone replacement therapy
  4. PREMARIN [Suspect]
     Active Substance: ESTROGENS, CONJUGATED
     Indication: Neoplasm malignant
  5. GABAPENTIN [Concomitant]
     Active Substance: GABAPENTIN
     Indication: Back pain
     Dosage: 600 MG, 2X/DAY
  6. GABAPENTIN [Concomitant]
     Active Substance: GABAPENTIN
     Indication: Neuralgia
     Dosage: UNK
     Dates: start: 202112
  7. GABAPENTIN [Concomitant]
     Active Substance: GABAPENTIN
     Indication: Back disorder

REACTIONS (16)
  - Drug ineffective [Recovered/Resolved]
  - Dehydration [Recovered/Resolved]
  - Hyperhidrosis [Recovered/Resolved]
  - Vertigo [Recovered/Resolved]
  - Cerebrovascular accident [Recovered/Resolved]
  - Neoplasm malignant [Recovered/Resolved]
  - Deafness [Not Recovered/Not Resolved]
  - Off label use [Unknown]
  - Intentional product misuse [Unknown]
  - Product dispensing error [Unknown]
  - Cardiac disorder [Recovered/Resolved]
  - Back disorder [Not Recovered/Not Resolved]
  - Dizziness [Not Recovered/Not Resolved]
  - Hypertension [Not Recovered/Not Resolved]
  - Musculoskeletal discomfort [Not Recovered/Not Resolved]
  - Viral infection [Unknown]

NARRATIVE: CASE EVENT DATE: 20200101
